FAERS Safety Report 8061051-1 (Version None)
Quarter: 2012Q1

REPORT INFORMATION
  Report Type: 
  Country: None (occurrence: None)
  Receive Date: 20120120
  Receipt Date: 20110509
  Transmission Date: 20120608
  Serious: No
  Sender: FDA-Public Use
  Company Number: US-ALLERGAN-1106327US

PATIENT
  Age: 76 Year
  Sex: Male

DRUGS (2)
  1. RESTASIS [Suspect]
     Indication: EYE BURNS
     Dosage: 1 GTT, BID
     Route: 047
     Dates: start: 20100301, end: 20110201
  2. GENTEAL [Concomitant]
     Indication: EYE BURNS
     Dosage: 1 GTT, PRN
     Dates: start: 20091001

REACTIONS (2)
  - EYE IRRITATION [None]
  - FOREIGN BODY SENSATION IN EYES [None]
